FAERS Safety Report 16756703 (Version 1)
Quarter: 2019Q3

REPORT INFORMATION
  Report Type: Report from Study
  Country: DE (occurrence: DE)
  Receive Date: 20190829
  Receipt Date: 20190829
  Transmission Date: 20191005
  Serious: Yes (Other)
  Sender: FDA-Public Use
  Company Number: DE-SHIRE-DE201927881

PATIENT

DRUGS (1)
  1. HUMAN IMMUNOGLOBULIN; HYALURONIDASE [Suspect]
     Active Substance: HUMAN IMMUNOGLOBULIN G\HYALURONIDASE RECOMBINANT HUMAN
     Indication: PARENTERAL NUTRITION
     Dosage: 30 MILLIGRAM, 1X A MONTH
     Route: 058
     Dates: start: 20180511, end: 20190822

REACTIONS (2)
  - Intentional product use issue [Unknown]
  - Infection [Unknown]
